FAERS Safety Report 9071880 (Version 1)
Quarter: 2013Q1

REPORT INFORMATION
  Report Type: Spontaneous
  Country: US (occurrence: US)
  Receive Date: 20130129
  Receipt Date: 20130129
  Transmission Date: 20140127
  Serious: Yes (Death)
  Sender: FDA-Public Use
  Company Number: PHHY2013US006685

PATIENT
  Age: 67 Year
  Sex: Male

DRUGS (6)
  1. METOPROLOL [Suspect]
     Dosage: UNK UKN, UNK
  2. AMLODIPINE [Suspect]
     Dosage: UNK UKN, UNK
  3. PARACETAMOL SANDOZ [Suspect]
     Dosage: UNK UKN, UNK
  4. DILTIAZEM [Suspect]
     Dosage: UNK UKN, UNK
  5. LABETALOL [Suspect]
     Dosage: UNK UKN, UNK
  6. SERTRALINE [Suspect]
     Dosage: UNK UKN, UNK

REACTIONS (1)
  - Completed suicide [Fatal]
